FAERS Safety Report 19050531 (Version 1)
Quarter: 2021Q1

REPORT INFORMATION
  Report Type: Spontaneous
  Country: US (occurrence: US)
  Receive Date: 20210323
  Receipt Date: 20210323
  Transmission Date: 20210420
  Serious: Yes (Other)
  Sender: FDA-Public Use
  Company Number: None

PATIENT
  Sex: Male
  Weight: 74.25 kg

DRUGS (1)
  1. COLESTIPOL HYDROCHLORIDE TABLETS 1 G [Suspect]
     Active Substance: COLESTIPOL HYDROCHLORIDE
     Indication: BILE OUTPUT ABNORMAL
     Dosage: ?          QUANTITY:1 TABLET(S);?
     Route: 048

REACTIONS (5)
  - Product use complaint [None]
  - Vomiting [None]
  - Product size issue [None]
  - Product coating issue [None]
  - Choking [None]
